FAERS Safety Report 9314144 (Version 3)
Quarter: 2014Q3

REPORT INFORMATION
  Report Type: Spontaneous
  Country: JP (occurrence: JP)
  Receive Date: 20130529
  Receipt Date: 20140722
  Transmission Date: 20150326
  Serious: Yes (Hospitalization)
  Sender: FDA-Public Use
  Company Number: JP-JNJFOC-20130516187

PATIENT
  Age: 78 Year
  Sex: Female
  Weight: 51 kg

DRUGS (9)
  1. MEROPENEM HYDRATE [Concomitant]
     Active Substance: MEROPENEM
     Indication: ANTIBIOTIC PROPHYLAXIS
     Route: 065
     Dates: start: 20130517, end: 20130523
  2. OXAROL [Concomitant]
     Active Substance: MAXACALCITOL
     Indication: PSORIASIS
     Route: 061
  3. ALLELOCK [Concomitant]
     Active Substance: OLOPATADINE HYDROCHLORIDE
     Indication: PSORIASIS
     Route: 048
  4. RINDERON VG [Concomitant]
     Active Substance: BETAMETHASONE VALERATE\GENTAMICIN SULFATE
     Indication: PSORIASIS
     Route: 061
  5. STELARA [Suspect]
     Active Substance: USTEKINUMAB
     Indication: PSORIASIS
     Route: 058
     Dates: start: 20130508
  6. DERMOVATE [Concomitant]
     Active Substance: CLOBETASOL
     Indication: PSORIASIS
     Route: 061
  7. LEVOFLOXACIN HEMIHYDRATE [Concomitant]
     Active Substance: LEVOFLOXACIN
     Indication: ANTIBIOTIC PROPHYLAXIS
     Route: 048
     Dates: start: 20130514, end: 20130517
  8. TIGASON [Concomitant]
     Active Substance: ETRETINATE
     Indication: PSORIASIS
     Route: 048
     Dates: start: 20130611
  9. TIGASON [Concomitant]
     Active Substance: ETRETINATE
     Indication: PSORIASIS
     Route: 048
     Dates: start: 20130603, end: 20130610

REACTIONS (1)
  - Interstitial lung disease [Recovered/Resolved]

NARRATIVE: CASE EVENT DATE: 20130514
